FAERS Safety Report 5070514-2 (Version None)
Quarter: 2006Q3

REPORT INFORMATION
  Report Type: 
  Country: None (occurrence: None)
  Receive Date: 20060804
  Receipt Date: 20060704
  Transmission Date: 20061208
  Serious: Yes (Disabling)
  Sender: FDA-Public Use
  Company Number: JP-SP-2006-01714

PATIENT
  Age: 61 Year
  Sex: Male

DRUGS (2)
  1. IMMUCYST [Suspect]
     Indication: CARCINOMA IN SITU OF BLADDER
     Route: 043
     Dates: start: 20050729, end: 20050901
  2. ISONIAZID [Concomitant]
     Dates: start: 20050729, end: 20050903

REACTIONS (2)
  - POLLAKIURIA [None]
  - PYURIA [None]
